FAERS Safety Report 8747371 (Version 5)
Quarter: 2013Q3

REPORT INFORMATION
  Report Type: Spontaneous
  Country: US (occurrence: US)
  Receive Date: 20120827
  Receipt Date: 20130827
  Transmission Date: 20140515
  Serious: Yes (Hospitalization, Disabling, Other)
  Sender: FDA-Public Use
  Company Number: US-009507513-1208USA007484

PATIENT
  Sex: Female
  Weight: 58.5 kg

DRUGS (4)
  1. FOSAMAX [Suspect]
     Indication: OSTEOPENIA
     Dosage: 10 MG, UNK
     Route: 048
     Dates: start: 199805, end: 200109
  2. FOSAMAX [Suspect]
     Dosage: 70 MG, UNK
     Route: 048
     Dates: start: 200110
  3. FOSAMAX [Suspect]
     Route: 048
  4. ALENDRONATE SODIUM [Suspect]
     Indication: OSTEOPENIA
     Dosage: 70 MG, UNK
     Route: 048
     Dates: start: 200806, end: 200904

REACTIONS (39)
  - Chronic obstructive pulmonary disease [Unknown]
  - Metabolic function test [Unknown]
  - Angina pectoris [Unknown]
  - Coronary artery disease [Unknown]
  - Bone densitometry [Unknown]
  - Osteonecrosis of jaw [Not Recovered/Not Resolved]
  - Dental caries [Unknown]
  - Dental caries [Unknown]
  - Oral pain [Unknown]
  - Biopsy bone [Unknown]
  - Biopsy bone [Unknown]
  - Biopsy bone [Unknown]
  - Hypertension [Unknown]
  - Blood cholesterol increased [Unknown]
  - Adverse event [Unknown]
  - Adverse event [Unknown]
  - Cataract operation [Unknown]
  - Coronary arterial stent insertion [Unknown]
  - Coronary arterial stent insertion [Unknown]
  - Dental caries [Unknown]
  - Device failure [Unknown]
  - Dyspnoea [Not Recovered/Not Resolved]
  - Pulmonary mass [Unknown]
  - Infection [Not Recovered/Not Resolved]
  - Nasal congestion [Not Recovered/Not Resolved]
  - Nocturnal dyspnoea [Unknown]
  - Fatigue [Unknown]
  - Sinusitis [Recovering/Resolving]
  - Arthritis [Unknown]
  - Tooth fracture [Unknown]
  - Tooth fracture [Unknown]
  - Tooth fracture [Unknown]
  - Endodontic procedure [Unknown]
  - Increased tendency to bruise [Unknown]
  - Tooth fracture [Unknown]
  - Respiratory disorder [Unknown]
  - Osteomyelitis [Unknown]
  - Pain in jaw [Unknown]
  - Nausea [Unknown]
